FAERS Safety Report 4534687-X (Version None)
Quarter: 2004Q4

REPORT INFORMATION
  Report Type: 
  Country: None (occurrence: None)
  Receive Date: 20041222
  Receipt Date: 20030916
  Transmission Date: 20050328
  Serious: No
  Sender: FDA-Public Use
  Company Number: US-BRISTOL-MYERS SQUIBB COMPANY-12386405

PATIENT
  Age: 68 Year
  Sex: Female
  Weight: 100 kg

DRUGS (5)
  1. PRAVACHOL [Suspect]
     Indication: BLOOD CHOLESTEROL INCREASED
     Route: 048
     Dates: start: 20030301
  2. GLUCOPHAGE [Suspect]
     Indication: DIABETES MELLITUS
     Route: 048
  3. TRICOR [Concomitant]
     Dosage: STARTED RIGHT AFTER STARTING PRAVACHOL.
  4. PROCARDIA [Concomitant]
  5. INSULIN [Concomitant]

REACTIONS (1)
  - ALOPECIA [None]
